FAERS Safety Report 5079125-6 (Version None)
Quarter: 2006Q3

REPORT INFORMATION
  Report Type: 
  Country: None (occurrence: None)
  Receive Date: 20060808
  Receipt Date: 20060727
  Transmission Date: 20061208
  Serious: Yes (Death, Hospitalization, Other)
  Sender: FDA-Public Use
  Company Number: 2006067216

PATIENT
  Age: 79 Year
  Sex: Male

DRUGS (7)
  1. CABERGOLINE [Suspect]
     Indication: PARKINSON'S DISEASE
     Dosage: 0.25 MG (0.25 MG, 1 IN 1 D), ORAL
     Route: 048
     Dates: end: 20060531
  2. PERINDOPRIL ERBUMINE [Concomitant]
  3. OLMETEC (OLMESARTAN) [Concomitant]
  4. LEVODOPA-CARBIDOPA (CARBIDOPA, LEVODOPA) [Concomitant]
  5. SYMMETREL [Concomitant]
  6. NIVADIL (NILVADIPINE) [Concomitant]
  7. POSTERISAN FORTE (ESCHERICHIA COLI, LYOPHILIZED, HYDROCORTISONE, LANOL [Concomitant]

REACTIONS (5)
  - INTERSTITIAL LUNG DISEASE [None]
  - PLEURAL EFFUSION [None]
  - PNEUMONIA ASPIRATION [None]
  - PULMONARY FIBROSIS [None]
  - TUBERCULOUS PLEURISY [None]
